FAERS Safety Report 11810362 (Version 4)
Quarter: 2018Q4

REPORT INFORMATION
  Report Type: Spontaneous
  Country: CH (occurrence: CH)
  Receive Date: 20151208
  Receipt Date: 20181219
  Transmission Date: 20190204
  Serious: Yes (Hospitalization, Other)
  Sender: FDA-Public Use
  Company Number: CH-TEVA-614480ISR

PATIENT
  Age: 26 Year
  Sex: Female

DRUGS (2)
  1. PARACETAMOL [Suspect]
     Active Substance: ACETAMINOPHEN
     Indication: ANALGESIC THERAPY
     Route: 065
  2. TRAMADOL HYDROCHLORIDE. [Suspect]
     Active Substance: TRAMADOL HYDROCHLORIDE
     Indication: ANALGESIC THERAPY
     Route: 065

REACTIONS (12)
  - Cardiac murmur [Unknown]
  - Renal failure [Recovered/Resolved]
  - Maternal exposure during pregnancy [Unknown]
  - Secondary hypertension [Unknown]
  - Myelitis [Unknown]
  - Delirium [Unknown]
  - Sciatica [Unknown]
  - Hepatic enzyme increased [Recovered/Resolved]
  - Aortic thrombosis [Unknown]
  - Intestinal angina [Recovering/Resolving]
  - Live birth [Unknown]
  - Premature baby [Unknown]
